FAERS Safety Report 22641287 (Version 1)
Quarter: 2023Q2

REPORT INFORMATION
  Report Type: Spontaneous
  Country: US (occurrence: US)
  Receive Date: 20230626
  Receipt Date: 20230626
  Transmission Date: 20230722
  Serious: No
  Sender: FDA-Public Use
  Company Number: US-SA-SAC20230622001173

PATIENT
  Sex: Female
  Weight: 96.599 kg

DRUGS (2)
  1. DUPIXENT [Suspect]
     Active Substance: DUPILUMAB
     Indication: Asthma
     Dosage: 300 MG, QOW
     Route: 058
     Dates: start: 20211223
  2. CLAZAKIZUMAB [Concomitant]
     Active Substance: CLAZAKIZUMAB

REACTIONS (1)
  - Dyspnoea [Unknown]
